FAERS Safety Report 16985821 (Version 1)
Quarter: 2019Q4

REPORT INFORMATION
  Report Type: Spontaneous
  Country: GB (occurrence: GB)
  Receive Date: 20191101
  Receipt Date: 20191101
  Transmission Date: 20200122
  Serious: Yes (Life-Threatening, Hospitalization)
  Sender: FDA-Public Use
  Company Number: GB-MYLANLABS-2019M1103667

PATIENT
  Age: 44 Year
  Sex: Male

DRUGS (3)
  1. DEXAMETHASONE. [Concomitant]
     Active Substance: DEXAMETHASONE
     Indication: SEIZURE
     Dosage: UNK
  2. LEVETIRACETAM. [Suspect]
     Active Substance: LEVETIRACETAM
     Indication: SEIZURE
     Dosage: 1000 MILLIGRAM, QD
     Route: 048
     Dates: start: 20180704, end: 20180727
  3. LANSOPRAZOLE. [Concomitant]
     Active Substance: LANSOPRAZOLE
     Indication: PROPHYLAXIS
     Dosage: UNK

REACTIONS (4)
  - Neutropenic sepsis [Unknown]
  - Chills [Unknown]
  - Agranulocytosis [Not Recovered/Not Resolved]
  - Neutropenia [Unknown]

NARRATIVE: CASE EVENT DATE: 20180727
